FAERS Safety Report 5608815-9 (Version None)
Quarter: 2008Q1

REPORT INFORMATION
  Report Type: 
  Country: None (occurrence: None)
  Receive Date: 20080131
  Receipt Date: 20080124
  Transmission Date: 20080703
  Serious: Yes (Other)
  Sender: FDA-Public Use
  Company Number: DE-BAYER-DE-2007-043510

PATIENT
  Age: 42 Year
  Sex: Male

DRUGS (1)
  1. ULTRAVIST 370 [Suspect]
     Indication: UROGRAM
     Route: 042
     Dates: start: 20071115, end: 20071115

REACTIONS (7)
  - BLISTER [None]
  - ERYTHEMA [None]
  - PARAESTHESIA [None]
  - RASH [None]
  - RESTLESSNESS [None]
  - TREMOR [None]
  - URTICARIA [None]
